FAERS Safety Report 7246728-X (Version None)
Quarter: 2011Q1

REPORT INFORMATION
  Report Type: 
  Country: None (occurrence: None)
  Receive Date: 20110127
  Receipt Date: 20110118
  Transmission Date: 20110831
  Serious: Yes (Hospitalization)
  Sender: FDA-Public Use
  Company Number: IL-JNJFOC-20110104766

PATIENT
  Sex: Female

DRUGS (4)
  1. DOXORUBICIN HYDROCHLORIDE [Suspect]
     Indication: BREAST CANCER
     Route: 042
  2. PEGFILGRASTIM [Suspect]
     Indication: BREAST CANCER
     Route: 058
  3. DEXRAZOXANE [Concomitant]
     Route: 065
  4. CYCLOPHOSPHAMIDE [Suspect]
     Indication: BREAST CANCER
     Route: 065

REACTIONS (5)
  - BONE PAIN [None]
  - CHILLS [None]
  - PYREXIA [None]
  - HYPONATRAEMIA [None]
  - INFLUENZA LIKE ILLNESS [None]
